FAERS Safety Report 5252337-4 (Version None)
Quarter: 2007Q1

REPORT INFORMATION
  Report Type: 
  Country: None (occurrence: None)
  Receive Date: 20070301
  Receipt Date: 20060601
  Transmission Date: 20070707
  Serious: No
  Sender: FDA-Public Use
  Company Number: US-BRISTOL-MYERS SQUIBB COMPANY-13398912

PATIENT
  Age: 52 Year
  Sex: Female
  Weight: 69 kg

DRUGS (8)
  1. TAXOL [Suspect]
     Indication: BREAST CANCER STAGE IV
     Route: 042
     Dates: start: 20060517
  2. AVASTIN [Concomitant]
     Dates: start: 20060517
  3. SYNTHROID [Concomitant]
  4. CELEBREX [Concomitant]
  5. DEXAMETHASONE [Concomitant]
  6. BENADRYL [Concomitant]
  7. ZOFRAN [Concomitant]
  8. PEPCID [Concomitant]

REACTIONS (1)
  - HYPOTRICHOSIS [None]
